FAERS Safety Report 9162032 (Version 2)
Quarter: 2013Q2

REPORT INFORMATION
  Report Type: Spontaneous
  Country: GR (occurrence: GR)
  Receive Date: 20130314
  Receipt Date: 20130415
  Transmission Date: 20140414
  Serious: Yes (Other)
  Sender: FDA-Public Use
  Company Number: GR-RANBAXY-2013RR-65957

PATIENT
  Age: 44 Year
  Sex: Male

DRUGS (12)
  1. FLUCONAZOLE [Suspect]
     Indication: MENINGITIS CRYPTOCOCCAL
     Dosage: 400 MG/DAY
     Route: 048
  2. FLUCONAZOLE [Suspect]
     Indication: MENINGITIS CRYPTOCOCCAL
     Dosage: 800 MG/DAY
     Route: 065
  3. AMPHOTERICIN B [Suspect]
     Indication: MENINGITIS CRYPTOCOCCAL
     Dosage: 3 MG/KG, UNK
     Route: 065
  4. AMPHOTERICIN B [Concomitant]
     Indication: MENINGITIS CRYPTOCOCCAL
     Dosage: 0.7 MG/KG, UNK
     Route: 042
  5. FLUCYTOSINE [Concomitant]
     Indication: MENINGITIS CRYPTOCOCCAL
     Dosage: 100 MG/KG/DAY IN 4 DIVIDED DOSES
     Route: 048
  6. VORICONAZOLE [Concomitant]
     Indication: MENINGITIS CRYPTOCOCCAL
     Dosage: 6 MG/KG, UNK
     Route: 042
  7. VORICONAZOLE [Concomitant]
     Dosage: 5 MG/KG, BID
     Route: 042
  8. LIPOSOMAL AMPHOTERICIN B [Concomitant]
     Indication: MENINGITIS CRYPTOCOCCAL
     Dosage: 3 MG/KG, UNK
     Route: 065
  9. INTERFERON GAMMA [Concomitant]
     Indication: MENINGITIS CRYPTOCOCCAL
     Dosage: 200 ?G, 3/WEEK
     Route: 058
  10. LOPINAVIR/RITONAVIR [Concomitant]
     Indication: HIV INFECTION
     Dosage: UNK
     Route: 065
  11. TENOFOVIR [Concomitant]
     Indication: HIV INFECTION
     Dosage: UNK
     Route: 065
  12. EMTRICITABINE [Concomitant]
     Indication: HIV INFECTION
     Dosage: UNK
     Route: 065

REACTIONS (3)
  - Blood creatinine increased [Unknown]
  - Adrenal insufficiency [Unknown]
  - Blood urea increased [Unknown]
